FAERS Safety Report 4872056-3 (Version None)
Quarter: 2005Q4

REPORT INFORMATION
  Report Type: 
  Country: None (occurrence: None)
  Receive Date: 20051230
  Receipt Date: 20051220
  Transmission Date: 20060501
  Serious: Yes (Other)
  Sender: FDA-Public Use
  Company Number: 2003149586US

PATIENT
  Age: 18 Year
  Sex: Female

DRUGS (3)
  1. DEPO-PROVERA SUSPENSION/INJ [Suspect]
     Indication: CONTRACEPTION
     Dosage: SEE IMAGE, INTRAMUSCULAR
     Route: 030
     Dates: start: 20020101, end: 20020101
  2. DEPO-PROVERA SUSPENSION/INJ [Suspect]
     Indication: CONTRACEPTION
     Dosage: SEE IMAGE, INTRAMUSCULAR
     Route: 030
     Dates: start: 20030225, end: 20030225
  3. WELLBUTRIN [Concomitant]

REACTIONS (4)
  - DYSPNOEA [None]
  - HEART RATE INCREASED [None]
  - OEDEMA PERIPHERAL [None]
  - URTICARIA GENERALISED [None]
